FAERS Safety Report 4827409-6 (Version None)
Quarter: 2005Q4

REPORT INFORMATION
  Report Type: 
  Country: None (occurrence: None)
  Receive Date: 20051114
  Receipt Date: 20050616
  Transmission Date: 20060501
  Serious: Yes (Hospitalization, Other)
  Sender: FDA-Public Use
  Company Number: US-MERCK-0506USA02685

PATIENT
  Age: 67 Year
  Sex: Female
  Weight: 86 kg

DRUGS (7)
  1. VIOXX [Suspect]
     Indication: RHEUMATOID ARTHRITIS
     Route: 048
     Dates: start: 19990101, end: 20041001
  2. VASOTEC [Concomitant]
     Indication: HYPERTENSION
     Route: 065
     Dates: start: 19900101, end: 20050213
  3. FOSAMAX [Concomitant]
     Indication: OSTEOPOROSIS
     Route: 065
  4. MODURETIC 5-50 [Concomitant]
     Indication: OEDEMA PERIPHERAL
     Route: 065
     Dates: start: 19950101
  5. MODURETIC 5-50 [Concomitant]
     Indication: SWELLING
     Route: 065
     Dates: start: 19950101
  6. PLAVIX [Concomitant]
     Indication: CEREBROVASCULAR ACCIDENT
     Route: 065
     Dates: start: 20020101
  7. ASPIRIN [Concomitant]
     Indication: CEREBROVASCULAR ACCIDENT PROPHYLAXIS
     Route: 065
     Dates: start: 20020101

REACTIONS (8)
  - ADVERSE EVENT [None]
  - BLOOD CHOLESTEROL INCREASED [None]
  - CARDIAC DISORDER [None]
  - CEREBROVASCULAR ACCIDENT [None]
  - DIZZINESS [None]
  - DYSPEPSIA [None]
  - SWELLING FACE [None]
  - TRANSIENT ISCHAEMIC ATTACK [None]
